FAERS Safety Report 5644243-8 (Version None)
Quarter: 2008Q1

REPORT INFORMATION
  Report Type: 
  Country: None (occurrence: None)
  Receive Date: 20080227
  Receipt Date: 20080227
  Transmission Date: 20080703
  Serious: Yes (Hospitalization)
  Sender: FDA-Public Use
  Company Number: None

PATIENT
  Age: 69 Year
  Sex: Female
  Weight: 52.6173 kg

DRUGS (1)
  1. MUCINEX [Suspect]
     Indication: HEADACHE
     Dosage: 1 TAB USED 4 TOTAL 1/12HRS PO
     Route: 048
     Dates: start: 20080222, end: 20080224

REACTIONS (7)
  - ASTHENIA [None]
  - DIZZINESS [None]
  - FATIGUE [None]
  - HYPOTENSION [None]
  - ILL-DEFINED DISORDER [None]
  - MUSCULOSKELETAL PAIN [None]
  - PAIN IN EXTREMITY [None]
